FAERS Safety Report 9327412 (Version 2)
Quarter: 2013Q3

REPORT INFORMATION
  Report Type: Spontaneous
  Country: US (occurrence: US)
  Receive Date: 20130604
  Receipt Date: 20130708
  Transmission Date: 20140515
  Serious: No
  Sender: FDA-Public Use
  Company Number: US-AMGEN-USASP2013037115

PATIENT
  Age: 61 Year
  Sex: Female
  Weight: 55.96 kg

DRUGS (16)
  1. ENBREL [Suspect]
     Indication: PSORIATIC ARTHROPATHY
     Dosage: 50 MG, QWK
     Route: 058
     Dates: start: 201304
  2. ENBREL [Suspect]
     Indication: PSORIASIS
  3. AZASITE [Concomitant]
     Dosage: 1 %, UNK
     Route: 047
  4. ANACIN                             /00141001/ [Concomitant]
     Dosage: 400-32 MG
     Route: 048
  5. FOLIC ACID [Concomitant]
     Indication: PSORIATIC ARTHROPATHY
     Dosage: 1 MG, QD
     Route: 048
  6. METHOTREXATE [Concomitant]
     Indication: PSORIASIS
     Dosage: 25 MG/ML, QWK
     Route: 058
  7. ACETAMINOPHEN [Concomitant]
     Dosage: 325 MG, UNK
     Route: 048
  8. ALREX                              /00595201/ [Concomitant]
     Dosage: 0.2 %, UNK
     Route: 047
  9. CALCIUM D3                         /00944201/ [Concomitant]
     Dosage: 600 MG, UNK
     Route: 048
  10. DICYCLOMINE                        /00068601/ [Concomitant]
     Indication: DIARRHOEA
     Dosage: 10 MG, AS NECESSARY
     Route: 048
  11. FISH OIL [Concomitant]
     Dosage: 1200 MG, UNK
     Route: 048
  12. IMITREX                            /01044801/ [Concomitant]
     Indication: MIGRAINE
     Dosage: 50 MG, AS NECESSARY
     Route: 048
  13. LORAZEPAM [Concomitant]
     Indication: ANXIETY
     Dosage: 0.5 MG, BID
     Route: 048
  14. OMEPRAZOLE [Concomitant]
     Dosage: 20 MG, UNK
     Route: 048
  15. SYSTANE                            /00678601/ [Concomitant]
     Dosage: DRO 0.4-0.3%
     Route: 047
  16. VITAMIN D3 [Concomitant]
     Dosage: 1000 UNIT, UNK
     Route: 048

REACTIONS (10)
  - Productive cough [Unknown]
  - Cough [Unknown]
  - Nasal congestion [Unknown]
  - Nasal discharge discolouration [Unknown]
  - Wrong technique in drug usage process [Unknown]
  - Upper respiratory tract infection [Not Recovered/Not Resolved]
  - Eye infection [Unknown]
  - Injection site pain [Unknown]
  - Injection site haemorrhage [Unknown]
  - Nasopharyngitis [Unknown]
